FAERS Safety Report 7555600-7 (Version None)
Quarter: 2011Q2

REPORT INFORMATION
  Report Type: 
  Country: None (occurrence: None)
  Receive Date: 20110617
  Receipt Date: 20010728
  Transmission Date: 20111010
  Serious: Yes (Hospitalization)
  Sender: FDA-Public Use
  Company Number: PHBS2001CA07701

PATIENT
  Sex: Male

DRUGS (2)
  1. EXELON [Suspect]
     Dosage: 4.5 MG/D
     Route: 048
  2. EXELON [Suspect]
     Dosage: 3 MG, QD
     Route: 048
     Dates: start: 20010127

REACTIONS (1)
  - CARDIAC DISORDER [None]
